FAERS Safety Report 6119759 (Version 19)
Quarter: 2014Q1

REPORT INFORMATION
  Report Type: Spontaneous
  Country: US (occurrence: US)
  Receive Date: 20060831
  Receipt Date: 20140211
  Transmission Date: 20141002
  Serious: Yes (Death, Hospitalization, Other)
  Sender: FDA-Public Use
  Company Number: PHEH2006US10879

PATIENT
  Age: 70 Year
  Sex: Male
  Weight: 83.9 kg

DRUGS (48)
  1. ZOMETA [Suspect]
     Route: 041
     Dates: end: 2006
  2. LOPRESSOR [Concomitant]
     Dosage: 25 MG, BID
  3. IMDUR [Concomitant]
     Dosage: 30 MG, QD
  4. METOPROLOL [Concomitant]
  5. FAMOTIDINE [Concomitant]
  6. DIAZEPAM [Concomitant]
     Dosage: 5 MG, UNK
  7. TEMAZEPAM [Concomitant]
     Dosage: 15 MG, UNK
  8. CALCIUM CHLORIDE [Concomitant]
  9. PLAVIX [Concomitant]
     Dosage: 75 MG, BIW
     Route: 048
  10. ALPRAZOLAM [Concomitant]
  11. ASPIRIN ^BAYER^ [Concomitant]
     Dosage: 325 MG, QD
     Route: 048
  12. ATIVAN [Concomitant]
  13. CASODEX [Concomitant]
  14. EFFEXOR [Concomitant]
  15. ELDERTONIC [Concomitant]
  16. ELIGARD [Concomitant]
  17. FLOMAX ^BOEHRINGER INGELHEIM^ [Concomitant]
  18. K-DUR [Concomitant]
  19. LIPITOR                                 /NET/ [Concomitant]
  20. NITROGLYCERIN [Concomitant]
     Route: 042
  21. OXYCODONE [Concomitant]
  22. OXYCONTIN [Concomitant]
  23. PHENERGAN [Concomitant]
     Indication: PAIN
     Dosage: 25 MG, Q3H, AS NEEDED
     Route: 030
  24. PRILOSEC [Concomitant]
  25. PROZAC [Concomitant]
  26. RESTORIL [Concomitant]
  27. SENOKOT-S [Concomitant]
  28. TRIAMTERENE AND HYDROCHLOROTHIAZID ^HARRIS^ [Concomitant]
  29. TRILISATE [Concomitant]
  30. QUADRAMET [Concomitant]
  31. RADIATION [Concomitant]
  32. NEXIUM [Concomitant]
  33. THIAZIDE DERIVATIVES [Concomitant]
  34. VALIUM [Concomitant]
     Indication: NERVOUSNESS
     Route: 048
  35. DEMEROL [Concomitant]
     Dosage: 75 MG, UNK
  36. EMPIRIN [Concomitant]
  37. BENADRYL [Concomitant]
     Route: 048
  38. ATROPINE [Concomitant]
  39. REOPRO [Concomitant]
     Route: 042
  40. NITRO [Concomitant]
  41. ENOXAPARIN [Concomitant]
     Route: 058
  42. HEPARIN [Concomitant]
     Route: 042
  43. NUBAIN ^DUPONT PHARMA^ [Concomitant]
     Dosage: 5 MG, UNK
     Route: 042
  44. PEPCID [Concomitant]
     Dosage: 20 MG, BID
     Route: 048
  45. TYLOX [Concomitant]
     Indication: PAIN
  46. KETOROLAC [Concomitant]
     Route: 042
  47. MYLANTA [Concomitant]
     Indication: DYSPEPSIA
     Route: 048
  48. METHADONE [Concomitant]
     Dosage: 5 MG, BID

REACTIONS (90)
  - Death [Fatal]
  - Bladder obstruction [Unknown]
  - Lymphadenopathy [Unknown]
  - Retroperitoneal lymphadenopathy [Unknown]
  - Penile oedema [Unknown]
  - Osteonecrosis of jaw [Unknown]
  - Bone disorder [Unknown]
  - Injury [Unknown]
  - Pain [Unknown]
  - Anxiety [Unknown]
  - Renal failure chronic [Unknown]
  - Metastases to bone [Unknown]
  - Gingival atrophy [Unknown]
  - Hydronephrosis [Unknown]
  - Ureteric obstruction [Unknown]
  - Orthostatic hypotension [Unknown]
  - Pneumonia [Unknown]
  - Pyrexia [Unknown]
  - Lethargy [Unknown]
  - Disorientation [Unknown]
  - Insomnia [Unknown]
  - Musculoskeletal pain [Unknown]
  - Arthralgia [Unknown]
  - Hypotension [Unknown]
  - Sepsis [Unknown]
  - Urinary tract infection [Unknown]
  - Cough [Unknown]
  - Sputum discoloured [Unknown]
  - Pancreatic atrophy [Unknown]
  - Diverticulum intestinal [Unknown]
  - Vomiting [Unknown]
  - Aortic disorder [Unknown]
  - Fibrosis [Unknown]
  - Large intestine polyp [Unknown]
  - Dehydration [Unknown]
  - Bacterial infection [Unknown]
  - Toothache [Unknown]
  - Dyspnoea exertional [Unknown]
  - Back injury [Unknown]
  - Back pain [Unknown]
  - Vertigo [Unknown]
  - Metastases to spine [Unknown]
  - Intervertebral disc disorder [Unknown]
  - Hot flush [Unknown]
  - Urinary hesitation [Unknown]
  - Lung infiltration [Unknown]
  - Fall [Unknown]
  - Nodule [Unknown]
  - Skin lesion [Unknown]
  - Bone swelling [Recovering/Resolving]
  - Ecchymosis [Unknown]
  - Haematoma [Unknown]
  - Osteomyelitis [Unknown]
  - Varicose vein [Unknown]
  - Oral pain [Unknown]
  - Hypoaesthesia oral [Unknown]
  - Bladder trabeculation [Unknown]
  - Rotator cuff syndrome [Unknown]
  - Otorrhoea [Unknown]
  - Otitis externa [Recovering/Resolving]
  - Pain in jaw [Unknown]
  - Haematuria [Unknown]
  - Cholelithiasis [Unknown]
  - Splenomegaly [Unknown]
  - Tremor [Unknown]
  - Oedema [Unknown]
  - Aortic calcification [Unknown]
  - Arteriosclerosis [Unknown]
  - Aortic dilatation [Unknown]
  - Nephrolithiasis [Unknown]
  - Hiatus hernia [Unknown]
  - Laceration [Unknown]
  - Cerebral atrophy [Unknown]
  - Cerebral small vessel ischaemic disease [Unknown]
  - Pulmonary mass [Unknown]
  - Anaemia [Unknown]
  - Thrombocytopenia [Unknown]
  - Vision blurred [Unknown]
  - Hypercholesterolaemia [Unknown]
  - Blood urine present [Unknown]
  - Flank pain [Unknown]
  - Kidney infection [Unknown]
  - Prostatitis [Unknown]
  - Pollakiuria [Unknown]
  - Pyelonephritis acute [Unknown]
  - Musculoskeletal chest pain [Unknown]
  - Osteosclerosis [Unknown]
  - Bone lesion [Unknown]
  - Hydrocephalus [Unknown]
  - Lymphoma [Unknown]
